FAERS Safety Report 14328480 (Version 21)
Quarter: 2021Q3

REPORT INFORMATION
  Report Type: Spontaneous
  Country: BR (occurrence: BR)
  Receive Date: 20171227
  Receipt Date: 20210920
  Transmission Date: 20211014
  Serious: Yes (Other)
  Sender: FDA-Public Use
  Company Number: BR-GLAXOSMITHKLINE-BR2017GSK162592

PATIENT
  Sex: Female
  Weight: 86 kg

DRUGS (7)
  1. BENLYSTA [Suspect]
     Active Substance: BELIMUMAB
     Dosage: 800 MG, UNK
     Dates: start: 20171107
  2. ATENOLOL. [Concomitant]
     Active Substance: ATENOLOL
     Indication: BLOOD PRESSURE ABNORMAL
     Dosage: 50 MG, UNK
  3. HYDROCHLOROTHIAZIDE + LOSARTAN [Concomitant]
     Active Substance: HYDROCHLOROTHIAZIDE\LOSARTAN
     Indication: BLOOD PRESSURE MEASUREMENT
     Dosage: 25 MG, UNK
  4. BENLYSTA [Suspect]
     Active Substance: BELIMUMAB
     Dosage: UNK
     Dates: start: 20210616
  5. BENLYSTA [Suspect]
     Active Substance: BELIMUMAB
     Indication: SYSTEMIC LUPUS ERYTHEMATOSUS
     Dosage: 820 MG, UNK
     Dates: start: 20171010
  6. AZATHIOPRINE. [Concomitant]
     Active Substance: AZATHIOPRINE
     Indication: PRODUCT USED FOR UNKNOWN INDICATION
     Dosage: 150 MG, UNK
  7. ENALAPRIL [Concomitant]
     Active Substance: ENALAPRIL
     Indication: BLOOD PRESSURE ABNORMAL
     Dosage: 20 MG, UNK

REACTIONS (33)
  - Fatigue [Unknown]
  - Malaise [Unknown]
  - Nail disorder [Not Recovered/Not Resolved]
  - Gait disturbance [Unknown]
  - Tremor [Unknown]
  - Pain [Unknown]
  - Extremity necrosis [Unknown]
  - Weight fluctuation [Recovered/Resolved]
  - Dizziness [Unknown]
  - Nephritis [Unknown]
  - Alopecia [Recovered/Resolved]
  - Vertigo [Unknown]
  - Social problem [Unknown]
  - Proteinuria [Recovered/Resolved]
  - Influenza [Recovered/Resolved]
  - Hypertension [Unknown]
  - Therapeutic response unexpected [Recovered/Resolved]
  - Renal failure [Unknown]
  - Facial bones fracture [Unknown]
  - Hair texture abnormal [Recovered/Resolved]
  - Lung disorder [Unknown]
  - Underdose [Unknown]
  - Kidney infection [Recovered/Resolved]
  - Systemic lupus erythematosus [Unknown]
  - Fall [Unknown]
  - Arthralgia [Unknown]
  - Disease recurrence [Unknown]
  - Nasopharyngitis [Recovered/Resolved]
  - Labyrinthitis [Unknown]
  - Product dose omission issue [Unknown]
  - Renal disorder [Recovered/Resolved]
  - Product availability issue [Unknown]
  - Inappropriate schedule of product administration [Unknown]
